FAERS Safety Report 7457662-4 (Version None)
Quarter: 2011Q2

REPORT INFORMATION
  Report Type: 
  Country: None (occurrence: None)
  Receive Date: 20110502
  Receipt Date: 20110502
  Transmission Date: 20111010
  Serious: Yes (Hospitalization)
  Sender: FDA-Public Use
  Company Number: None

PATIENT
  Age: 13 Year
  Sex: Female
  Weight: 20.2 kg

DRUGS (1)
  1. ANAKINRA [Suspect]
     Indication: INFLAMMATION
     Dosage: 3MG/KG/DAY DAILY

REACTIONS (5)
  - DYSPNOEA [None]
  - USE OF ACCESSORY RESPIRATORY MUSCLES [None]
  - RALES [None]
  - LUNG INFILTRATION [None]
  - RESPIRATORY RATE INCREASED [None]
